FAERS Safety Report 4286158-6 (Version None)
Quarter: 2004Q1

REPORT INFORMATION
  Report Type: 
  Country: None (occurrence: None)
  Receive Date: 20040120
  Receipt Date: 20030220
  Transmission Date: 20041129
  Serious: Yes (Hospitalization)
  Sender: FDA-Public Use
  Company Number: 02P-163-0193124-00

PATIENT
  Age: 69 Year
  Sex: Male
  Weight: 58.0604 kg

DRUGS (20)
  1. DILAUDID [Suspect]
     Indication: PAIN MANAGEMENT
     Dosage: 2 MG, AS REQUIRED, INTRAVENOUS
     Route: 042
     Dates: start: 20020506, end: 20020506
  2. CALCIUM CARBONATE [Concomitant]
  3. DEPRIVAN [Concomitant]
  4. NEOSYNEPHRINE [Concomitant]
  5. MAALOX [Concomitant]
  6. TOBRAMYCIN [Concomitant]
  7. PHENERGAN [Concomitant]
  8. PARACETAMOL [Concomitant]
  9. METOCLOPRAMIDE [Concomitant]
  10. POTASSIUM PHOSPHATE MONOBASIC [Concomitant]
  11. TIMENTIN [Concomitant]
  12. METOPROLOL TARTRATE [Concomitant]
  13. FLUCONAZOLE [Concomitant]
  14. LANSOPRAZOLE [Concomitant]
  15. ACETYLSALICYLIC ACID SRT [Concomitant]
  16. CITALOPRAM HYDROBROMIDE [Concomitant]
  17. LISINOPRIL [Concomitant]
  18. DIGOXIN [Concomitant]
  19. INSULIN [Concomitant]
  20. MORPHINE [Concomitant]

REACTIONS (1)
  - RESPIRATORY DEPRESSION [None]
